FAERS Safety Report 14582605 (Version 1)
Quarter: 2018Q1

REPORT INFORMATION
  Report Type: Spontaneous
  Country: US (occurrence: US)
  Receive Date: 20180228
  Receipt Date: 20180228
  Transmission Date: 20180509
  Serious: No
  Sender: FDA-Public Use
  Company Number: US-TEVA-598167USA

PATIENT
  Age: 50 Year
  Sex: Male

DRUGS (4)
  1. PREDNISONE. [Concomitant]
     Active Substance: PREDNISONE
     Dosage: 60 MG/DAY
     Route: 048
  2. ANTABUSE [Suspect]
     Active Substance: DISULFIRAM
     Dosage: 500 MILLIGRAM DAILY; FOR 5 DAYS
     Route: 048
  3. ANTABUSE [Suspect]
     Active Substance: DISULFIRAM
     Indication: PNEUMONITIS
     Dosage: 500MG; 6 HOURS AFTER INITIAL DOSE
     Route: 048
  4. ANTABUSE [Suspect]
     Active Substance: DISULFIRAM
     Indication: PNEUMONITIS
     Dosage: 1G
     Route: 048

REACTIONS (2)
  - Transaminases increased [Unknown]
  - Off label use [Unknown]
